FAERS Safety Report 10192698 (Version 1)
Quarter: 2014Q2

REPORT INFORMATION
  Report Type: Spontaneous
  Country: JP (occurrence: JP)
  Receive Date: 20140523
  Receipt Date: 20140523
  Transmission Date: 20141212
  Serious: Yes (Hospitalization, Other)
  Sender: FDA-Public Use
  Company Number: JP-TAKEDA-2014TUS004071

PATIENT
  Age: 53 Year
  Sex: Female
  Weight: 48 kg

DRUGS (27)
  1. FEBURIC [Suspect]
     Indication: HYPERURICAEMIA
     Dosage: 10 MG, QD
     Route: 048
     Dates: start: 20130213, end: 20131107
  2. FEBURIC [Suspect]
     Dosage: 20 MG, QD
     Route: 048
     Dates: start: 20131108
  3. LASIX                              /00032601/ [Suspect]
     Indication: CARDIAC FAILURE
     Dosage: 60 MG, QD
     Route: 048
     Dates: start: 20130222, end: 20130314
  4. LASIX                              /00032601/ [Suspect]
     Dosage: 40 MG, QD
     Route: 048
     Dates: start: 20130315, end: 20131128
  5. LASIX                              /00032601/ [Suspect]
     Dosage: 20 MG, QD
     Route: 048
     Dates: start: 20131129, end: 20140108
  6. OLMETEC [Suspect]
     Indication: HYPERTENSION
     Dosage: 10 MG, QD
     Route: 048
     Dates: start: 20130303
  7. OLMETEC [Suspect]
     Dosage: 20 MG, QD
     Route: 048
     Dates: start: 20130323
  8. ALDACTONE A [Suspect]
     Indication: CARDIAC FAILURE
     Dosage: 25 MG, QD
     Route: 048
     Dates: start: 20130307, end: 20130502
  9. ALDACTONE A [Suspect]
     Dosage: 12.5 MG, QD
     Route: 048
     Dates: start: 20130822, end: 20130911
  10. ALDACTONE A [Suspect]
     Dosage: 25 MG, QD
     Route: 048
     Dates: start: 20131108
  11. LOCOID [Concomitant]
     Indication: ECZEMA ASTEATOTIC
     Dosage: UNK
     Route: 061
     Dates: start: 20130220, end: 20130226
  12. MYSER                              /01249201/ [Concomitant]
     Indication: ECZEMA ASTEATOTIC
     Dosage: UNK, AS NEEDED
     Route: 061
     Dates: start: 20130220, end: 20131104
  13. HIRUDOID                           /00723702/ [Concomitant]
     Indication: ECZEMA ASTEATOTIC
     Dosage: UNK, AS NEEDED
     Route: 061
     Dates: start: 20130220, end: 20130226
  14. HIRUDOID                           /00723702/ [Concomitant]
     Indication: HAND DERMATITIS
     Dosage: UNK
     Dates: start: 20131105, end: 20131205
  15. SAMSCA [Concomitant]
     Indication: CARDIAC FAILURE
     Dosage: 15 MG, QD
     Route: 048
     Dates: start: 20130222, end: 20130306
  16. SAMSCA [Concomitant]
     Dosage: 7.5 MG, QD
     Dates: start: 20130307, end: 20130417
  17. GASTER D [Concomitant]
     Indication: PROPHYLAXIS AGAINST GASTROINTESTINAL ULCER
     Dosage: 20 MG, QD
     Route: 048
     Dates: start: 20130222
  18. URSO                               /00465701/ [Concomitant]
     Indication: HEPATIC CONGESTION
     Dosage: 600 MG, QD
     Route: 048
     Dates: start: 20130223
  19. LIVACT                             /00847901/ [Concomitant]
     Indication: HEPATIC CONGESTION
     Dosage: 12.45 G, QD
     Route: 048
     Dates: start: 20130223
  20. FOLIAMIN [Concomitant]
     Indication: ANAEMIA
     Dosage: 15 MG, QD
     Route: 048
     Dates: start: 20130223
  21. PROMAC                             /01312301/ [Concomitant]
     Indication: PROPHYLAXIS AGAINST GASTROINTESTINAL ULCER
     Dosage: 2 DF, QD
     Route: 048
     Dates: start: 20130223
  22. ARTIST [Concomitant]
     Indication: CARDIAC FAILURE
     Dosage: 2.5 MG, QD
     Route: 048
     Dates: start: 20130307
  23. FERROMIA                           /00023520/ [Concomitant]
     Indication: ANAEMIA
     Dosage: 100 MG, QD
     Dates: start: 20130507, end: 20140109
  24. DIART [Concomitant]
     Indication: CARDIAC FAILURE
     Dosage: 30 MG, QD
     Route: 048
     Dates: start: 20130822, end: 20130911
  25. DIART [Concomitant]
     Dosage: 15 MG, QD
     Dates: start: 20130912
  26. POLARAMINE [Concomitant]
     Indication: ECZEMA ASTEATOTIC
     Dosage: 2 MG, QD
     Route: 048
     Dates: start: 20131119
  27. AMLODIN OD [Concomitant]
     Indication: HYPERTENSION
     Dosage: 2.5 MG, QD
     Route: 048
     Dates: start: 20131120

REACTIONS (10)
  - Aneurysm [Recovered/Resolved]
  - Dehydration [Recovered/Resolved]
  - Cardiac failure [Recovering/Resolving]
  - Dehydration [Recovered/Resolved]
  - Hepatic function abnormal [Recovering/Resolving]
  - Hyperkalaemia [Recovered/Resolved]
  - Anaemia [Recovering/Resolving]
  - Anaemia [Recovered/Resolved]
  - Hand dermatitis [Recovered/Resolved]
  - Hypertension [Recovering/Resolving]
